FAERS Safety Report 15796982 (Version 1)
Quarter: 2019Q1

REPORT INFORMATION
  Report Type: Spontaneous
  Country: US (occurrence: US)
  Receive Date: 20190107
  Receipt Date: 20190107
  Transmission Date: 20190417
  Serious: Yes (Hospitalization)
  Sender: FDA-Public Use
  Company Number: None

PATIENT
  Age: 33 Year
  Sex: Male

DRUGS (3)
  1. HUMIRA [Suspect]
     Active Substance: ADALIMUMAB
     Indication: PRODUCT USED FOR UNKNOWN INDICATION
     Dosage: ?          OTHER FREQUENCY:STARTER DOSE;?
     Route: 058
     Dates: start: 20181204
  2. PREDNISONE. [Concomitant]
     Active Substance: PREDNISONE
  3. OXYCOD [Concomitant]

REACTIONS (5)
  - Headache [None]
  - Nausea [None]
  - Vomiting [None]
  - Diarrhoea haemorrhagic [None]
  - Pain [None]

NARRATIVE: CASE EVENT DATE: 20181229
